FAERS Safety Report 8780119 (Version 1)
Quarter: 2012Q4

REPORT INFORMATION
  Report Type: Spontaneous
  Country: US (occurrence: None)
  Receive Date: 20120904
  Receipt Date: 20120904
  Transmission Date: 20130627
  Serious: Yes (Other)
  Sender: FDA-Public Use
  Company Number: None

PATIENT
  Age: 15 Year
  Sex: Female
  Weight: 65.77 kg

DRUGS (1)
  1. LISTERINE WHITENING PRE-BRUSH RINSE CLEAN MINT [Suspect]
     Route: 048
     Dates: start: 20110320, end: 20110321

REACTIONS (4)
  - Oral discomfort [None]
  - Aphagia [None]
  - Oral mucosal exfoliation [None]
  - Fluid intake reduced [None]
